FAERS Safety Report 7387609-0 (Version None)
Quarter: 2011Q1

REPORT INFORMATION
  Report Type: 
  Country: None (occurrence: None)
  Receive Date: 20110331
  Receipt Date: 20110324
  Transmission Date: 20110831
  Serious: Yes (Death)
  Sender: FDA-Public Use
  Company Number: JP-EISAI INC-E3810-04563-SPO-JP

PATIENT
  Age: 68 Year
  Sex: Male

DRUGS (2)
  1. WARFARIN [Suspect]
     Route: 048
  2. PARIET (RABEPRAZOLE) [Suspect]
     Route: 048
     Dates: start: 20090501

REACTIONS (2)
  - INTERSTITIAL LUNG DISEASE [None]
  - PULMONARY ALVEOLAR HAEMORRHAGE [None]
